FAERS Safety Report 7542560-8 (Version None)
Quarter: 2011Q2

REPORT INFORMATION
  Report Type: 
  Country: None (occurrence: None)
  Receive Date: 20110613
  Receipt Date: 20110603
  Transmission Date: 20111010
  Serious: Yes (Hospitalization)
  Sender: FDA-Public Use
  Company Number: AT-ASTRAZENECA-2011SE13690

PATIENT
  Age: 50 Year
  Sex: Female
  Weight: 64 kg

DRUGS (1)
  1. ZOLMITRIPTAN [Suspect]
     Dosage: AS REQUIRED
     Route: 048
     Dates: start: 20010101, end: 20110303

REACTIONS (4)
  - ISCHAEMIA [None]
  - DYSPNOEA [None]
  - CORONARY ARTERY DISEASE [None]
  - CHEST DISCOMFORT [None]
